FAERS Safety Report 16963674 (Version 1)
Quarter: 2019Q4

REPORT INFORMATION
  Report Type: Spontaneous
  Country: CA (occurrence: CA)
  Receive Date: 20191025
  Receipt Date: 20191025
  Transmission Date: 20200122
  Serious: Yes (Hospitalization)
  Sender: FDA-Public Use
  Company Number: CA-TEVA-2019-CA-1126800

PATIENT
  Age: 15 Year
  Sex: Female
  Weight: 57 kg

DRUGS (14)
  1. VINCRISTINE SULFATE. [Concomitant]
     Active Substance: VINCRISTINE SULFATE
  2. VINORELBINE [Concomitant]
     Active Substance: VINORELBINE TARTRATE
  3. CYCLOPHOSPHAMIDE. [Concomitant]
     Active Substance: CYCLOPHOSPHAMIDE
  4. BLEOMYCIN [Concomitant]
     Active Substance: BLEOMYCIN SULFATE
  5. CARBOPLATIN. [Concomitant]
     Active Substance: CARBOPLATIN
  6. ETOPOSIDE. [Concomitant]
     Active Substance: ETOPOSIDE
  7. DEXAMETHASONE. [Concomitant]
     Active Substance: DEXAMETHASONE
  8. GEMCITABINE. [Suspect]
     Active Substance: GEMCITABINE
     Indication: HODGKIN^S DISEASE
     Dosage: 2775 MG/M2 DAILY;
     Route: 042
  9. DOXORUBICIN LIPOSOMAL [Concomitant]
     Active Substance: DOXORUBICIN
  10. IFOSFAMIDE. [Concomitant]
     Active Substance: IFOSFAMIDE
  11. BUSULFAN. [Suspect]
     Active Substance: BUSULFAN
     Indication: HODGKIN^S DISEASE
     Dosage: 110 MG/M2 DAILY;
     Route: 042
  12. BRENTUXIMAB VEDOTIN [Concomitant]
     Active Substance: BRENTUXIMAB VEDOTIN
  13. PREDNISONE. [Concomitant]
     Active Substance: PREDNISONE
  14. MELPHALAN. [Suspect]
     Active Substance: MELPHALAN
     Indication: HODGKIN^S DISEASE
     Dosage: 60 MG/M2 DAILY;
     Route: 042

REACTIONS (4)
  - Condition aggravated [Recovered/Resolved]
  - Dysphagia [Recovered/Resolved]
  - Erythema [Recovered/Resolved]
  - Mucosal inflammation [Recovered/Resolved]
